FAERS Safety Report 7124307-2 (Version None)
Quarter: 2010Q4

REPORT INFORMATION
  Report Type: 
  Country: None (occurrence: None)
  Receive Date: 20101126
  Receipt Date: 20101116
  Transmission Date: 20110411
  Serious: Yes (Hospitalization)
  Sender: FDA-Public Use
  Company Number: PHHY2010US78291

PATIENT
  Sex: Male

DRUGS (3)
  1. TOBI [Suspect]
     Indication: CYSTIC FIBROSIS
     Dosage: 300 MG, BID
  2. ZOSYN [Concomitant]
     Dosage: UNK
  3. VANCOMYCIN [Concomitant]
     Dosage: UNK

REACTIONS (5)
  - CARDIAC VALVE DISEASE [None]
  - DEVICE RELATED INFECTION [None]
  - HEART VALVE OPERATION [None]
  - PULMONARY EMBOLISM [None]
  - THROMBOSIS [None]
